FAERS Safety Report 24553214 (Version 3)
Quarter: 2024Q4

REPORT INFORMATION
  Report Type: Spontaneous
  Country: US (occurrence: US)
  Receive Date: 20241028
  Receipt Date: 20241119
  Transmission Date: 20250115
  Serious: No
  Sender: ROCHE
  Company Number: US-ROCHE-10000116308

PATIENT
  Age: 46 Year
  Sex: Female
  Weight: 72.57 kg

DRUGS (8)
  1. OCREVUS [Suspect]
     Active Substance: OCRELIZUMAB
     Indication: Multiple sclerosis
     Dosage: LAST INFUSION WAS ON 25-MAY-2024.?INFUSION ON 28-MAY-2024
     Route: 042
     Dates: start: 20240528
  2. BACLOFEN [Concomitant]
     Active Substance: BACLOFEN
  3. TEGRETOL [Concomitant]
     Active Substance: CARBAMAZEPINE
  4. OXYBUTYNIN [Concomitant]
     Active Substance: OXYBUTYNIN
  5. AMPYRA [Concomitant]
     Active Substance: DALFAMPRIDINE
  6. CHOLECALCIFEROL [Concomitant]
     Active Substance: CHOLECALCIFEROL
  7. COBAMAMIDE [Concomitant]
     Active Substance: COBAMAMIDE
  8. ACETYLCARNITINE [Concomitant]
     Active Substance: ACETYLCARNITINE

REACTIONS (3)
  - Weight increased [Unknown]
  - Gait inability [Recovered/Resolved]
  - Rash pruritic [Recovered/Resolved]

NARRATIVE: CASE EVENT DATE: 20240528
